FAERS Safety Report 8596085-1 (Version None)
Quarter: 2012Q3

REPORT INFORMATION
  Report Type: 
  Country: None (occurrence: None)
  Receive Date: 20120807
  Receipt Date: 20120807
  Transmission Date: 20120928
  Serious: Yes (Life-Threatening, Hospitalization)
  Sender: FDA-Public Use
  Company Number: None

PATIENT
  Age: 79 Year
  Sex: Female
  Weight: 68.0396 kg

DRUGS (1)
  1. MULTIVITAMIN [Suspect]
     Indication: AGE-RELATED MACULAR DEGENERATION
     Dosage: 1 SOFT GEL BID ORAL
     Route: 048
     Dates: start: 20030101, end: 20100101

REACTIONS (2)
  - URINARY TRACT INFECTION [None]
  - SEPSIS [None]
